FAERS Safety Report 11497318 (Version 1)
Quarter: 2015Q3

REPORT INFORMATION
  Report Type: Other
  Country: US (occurrence: US)
  Receive Date: 20150911
  Receipt Date: 20150911
  Transmission Date: 20151125
  Serious: Yes (Other)
  Sender: FDA-Public Use
  Company Number: US-SHIRE-US201511270

PATIENT
  Sex: Female
  Weight: 89.8 kg

DRUGS (18)
  1. CINRYZE [Suspect]
     Active Substance: HUMAN C1-ESTERASE INHIBITOR
     Indication: HEREDITARY ANGIOEDEMA
     Dosage: 1000 UNITS, OTHER (EVERY 4 DAYS)
     Route: 042
  2. FIRAZYR [Suspect]
     Active Substance: ICATIBANT ACETATE
     Indication: HEREDITARY ANGIOEDEMA
     Dosage: 30 MG, AS REQ^D
     Route: 058
  3. SODIUM CHLORIDE. [Concomitant]
     Active Substance: SODIUM CHLORIDE
     Indication: PRODUCT USED FOR UNKNOWN INDICATION
     Dosage: (0.9%) UNK, OTHER (AS DIRECTED)
     Route: 042
  4. NEXIUM [Concomitant]
     Active Substance: ESOMEPRAZOLE MAGNESIUM
     Indication: PRODUCT USED FOR UNKNOWN INDICATION
     Dosage: 40 MG, QOD
     Route: 048
     Dates: start: 20150402
  5. DIPHENHYDRAMINE. [Concomitant]
     Active Substance: DIPHENHYDRAMINE
     Indication: ANAPHYLAXIS PROPHYLAXIS
     Dosage: 25 MG, AS REQ^D
     Route: 048
     Dates: start: 20150331
  6. CALCIUM [Concomitant]
     Active Substance: CALCIUM
     Dosage: 1 TABLET, 1X/DAY:QD
     Route: 048
     Dates: start: 20150413
  7. NORMAL SALINE [Concomitant]
     Active Substance: SODIUM CHLORIDE
     Indication: ANAPHYLAXIS PROPHYLAXIS
     Dosage: (0.9%) UNK, OTHER (AS DIRECTED)
     Route: 042
     Dates: start: 20150331
  8. STERILE WATER [Concomitant]
     Active Substance: WATER
     Indication: MEDICATION DILUTION
     Dosage: 5 ML, OTHER (AS DIRECTED)
     Route: 042
  9. CINRYZE [Suspect]
     Active Substance: HUMAN C1-ESTERASE INHIBITOR
     Indication: PROPHYLAXIS
  10. VITAMINS NOS [Concomitant]
     Active Substance: VITAMINS
     Indication: PRODUCT USED FOR UNKNOWN INDICATION
     Dosage: 1 TABLET, 1X/DAY:QD
     Route: 048
     Dates: start: 20150326
  11. SERTRALINE [Concomitant]
     Active Substance: SERTRALINE HYDROCHLORIDE
     Indication: PRODUCT USED FOR UNKNOWN INDICATION
     Dosage: 100 MG, 1X/DAY:QD
     Route: 048
  12. EPIPEN [Concomitant]
     Active Substance: EPINEPHRINE
     Indication: ANAPHYLAXIS PROPHYLAXIS
     Dosage: 0.3 MG, AS REQ^D
     Route: 030
  13. ZYRTEC [Concomitant]
     Active Substance: CETIRIZINE HYDROCHLORIDE
     Indication: PRODUCT USED FOR UNKNOWN INDICATION
     Dosage: 10 MG, 3X/DAY:TID
     Route: 048
     Dates: start: 20150402
  14. ZANTAC [Concomitant]
     Active Substance: RANITIDINE HYDROCHLORIDE
     Indication: PRODUCT USED FOR UNKNOWN INDICATION
     Dosage: 150 MG, 3X/DAY:TID
     Route: 048
     Dates: start: 20150402
  15. XOLAIR [Concomitant]
     Active Substance: OMALIZUMAB
     Indication: PRODUCT USED FOR UNKNOWN INDICATION
     Dosage: 1 DF, OTHER (EVERY MONTH)
     Route: 030
  16. KALBITOR [Concomitant]
     Active Substance: ECALLANTIDE
     Indication: PRODUCT USED FOR UNKNOWN INDICATION
     Dosage: 30 MG, OTHER (AS DIRECTED)
     Route: 058
     Dates: start: 20150331
  17. ASPIRIN                            /00002701/ [Concomitant]
     Active Substance: ASPIRIN
     Indication: PRODUCT USED FOR UNKNOWN INDICATION
     Dosage: 81 MG, 1X/DAY:QD
     Route: 048
  18. CALCIUM [Concomitant]
     Active Substance: CALCIUM
     Indication: PRODUCT USED FOR UNKNOWN INDICATION
     Dosage: 500 MG, 1X/DAY:QD
     Route: 048
     Dates: start: 20150402

REACTIONS (1)
  - Cholecystitis acute [Unknown]
